FAERS Safety Report 6964705-0 (Version None)
Quarter: 2010Q3

REPORT INFORMATION
  Report Type: 
  Country: None (occurrence: None)
  Receive Date: 20100903
  Receipt Date: 20100823
  Transmission Date: 20110219
  Serious: Yes (Other)
  Sender: FDA-Public Use
  Company Number: US-PFIZER INC-2010105926

PATIENT
  Sex: Female

DRUGS (9)
  1. GABAPENTIN [Suspect]
     Dosage: UNK
  2. SPIRONOLACTONE [Concomitant]
     Dosage: 100 MG, 2X/DAY
  3. NADOLOL [Concomitant]
     Dosage: 40 MG, 1X/DAY
  4. LACTULOSE [Concomitant]
     Dosage: 10 G, 2X/DAY
  5. URSODIOL [Concomitant]
     Dosage: 300 MG, 1X/DAY
  6. FERROUS SULFATE [Concomitant]
     Dosage: 325 MG, 1X/DAY
  7. OMEPRAZOLE [Concomitant]
     Dosage: 20 MG, 2X/DAY
  8. CITALOPRAM [Concomitant]
     Dosage: 10 MG, 1X/DAY
  9. TRAZODONE [Concomitant]
     Dosage: 50 MG, NIGHTLY

REACTIONS (1)
  - WITHDRAWAL SYNDROME [None]
